FAERS Safety Report 21004936 (Version 2)
Quarter: 2022Q3

REPORT INFORMATION
  Report Type: Spontaneous
  Country: CN (occurrence: CN)
  Receive Date: 20220624
  Receipt Date: 20220928
  Transmission Date: 20221027
  Serious: Yes (Hospitalization)
  Sender: FDA-Public Use
  Company Number: CN-NOVARTISPH-NVSC2022CN143813

PATIENT
  Sex: Male
  Weight: .85 kg

DRUGS (12)
  1. CYCLOSPORINE [Suspect]
     Active Substance: CYCLOSPORINE
     Indication: Foetal exposure during pregnancy
     Dosage: MATERNAL EXPOSURE DURING PREGNANCY: UNK
     Route: 064
  2. EUTHYROX [Suspect]
     Active Substance: LEVOTHYROXINE SODIUM
     Indication: Foetal exposure during pregnancy
     Dosage: MATERNAL EXPOSURE DURING PREGNANCY: UNK
     Route: 064
  3. DEXAMETHASONE [Suspect]
     Active Substance: DEXAMETHASONE
     Indication: Foetal exposure during pregnancy
     Dosage: MATERNAL EXPOSURE DURING PREGNANCY: 10 MG
     Route: 064
  4. DEXAMETHASONE [Suspect]
     Active Substance: DEXAMETHASONE
     Dosage: MATERNAL EXPOSURE DURING PREGNANCY: 20 MG
     Route: 064
  5. DEXAMETHASONE [Suspect]
     Active Substance: DEXAMETHASONE
     Dosage: MATERNAL EXPOSURE DURING PREGNANCY: 40 MG HIGH DOSE PULSE
     Route: 064
     Dates: start: 20200217
  6. ADENOSINE TRIPHOSPHATE DISODIUM [Suspect]
     Active Substance: ADENOSINE TRIPHOSPHATE DISODIUM
     Indication: Foetal exposure during pregnancy
     Dosage: MATERNAL EXPOSURE DURING PREGNANCY: UNK
     Route: 064
  7. IRON [Suspect]
     Active Substance: IRON
     Indication: Foetal exposure during pregnancy
     Dosage: MATERNAL EXPOSURE DURING PREGNANCY: UNK
     Route: 064
  8. PREDNISONE [Suspect]
     Active Substance: PREDNISONE
     Indication: Foetal exposure during pregnancy
     Dosage: MATERNAL EXPOSURE DURING PREGNANCY: 50 MG/D
     Route: 064
  9. THROMBOPOIETIN [Suspect]
     Active Substance: THROMBOPOIETIN
     Indication: Foetal exposure during pregnancy
     Dosage: MATERNAL EXPOSURE DURING PREGNANCY: UNK
     Route: 064
  10. THROMBOPOIETIN [Suspect]
     Active Substance: THROMBOPOIETIN
     Dosage: MATERNAL EXPOSURE DURING PREGNANCY: 25000 U/D FOR 15 DAYS
     Route: 064
     Dates: start: 20200120
  11. IMMUNE GLOBULIN NOS [Suspect]
     Active Substance: IMMUNE GLOBULIN NOS
     Indication: Foetal exposure during pregnancy
     Dosage: MATERNAL EXPOSURE DURING PREGNANCY: 400 MG/KG/D FOR 5 DAYS
     Route: 064
     Dates: start: 20200115
  12. IMMUNE GLOBULIN NOS [Suspect]
     Active Substance: IMMUNE GLOBULIN NOS
     Dosage: MATERNAL EXPOSURE DURING PREGNANCY: UNK (SECOND COURSE)
     Route: 064
     Dates: start: 20200217

REACTIONS (4)
  - Low birth weight baby [Unknown]
  - Neonatal asphyxia [Unknown]
  - Premature baby [Unknown]
  - Foetal exposure during pregnancy [Unknown]
